FAERS Safety Report 9607728 (Version 1)
Quarter: 2013Q4

REPORT INFORMATION
  Report Type: Spontaneous
  Country: FR (occurrence: None)
  Receive Date: 20131004
  Receipt Date: 20131004
  Transmission Date: 20140711
  Serious: Yes (Hospitalization)
  Sender: FDA-Public Use
  Company Number: 1906984

PATIENT
  Age: 62 Year
  Sex: Female

DRUGS (4)
  1. CARBOPLATIN [Suspect]
     Indication: OVARIAN CANCER
     Dosage: 350 MG MILLIGRAM(S), INTRAVENOUS
     Route: 042
     Dates: start: 20090608, end: 20090608
  2. ENDOXAN [Concomitant]
  3. METHYLPREDNISOLONE MERCK) [Concomitant]
  4. ZOPHREN [Concomitant]

REACTIONS (4)
  - Feeling hot [None]
  - Erythema [None]
  - Paraesthesia [None]
  - Infusion related reaction [None]
